FAERS Safety Report 25213274 (Version 1)
Quarter: 2025Q2

REPORT INFORMATION
  Report Type: Spontaneous
  Country: US (occurrence: None)
  Receive Date: 20250417
  Receipt Date: 20250417
  Transmission Date: 20250716
  Serious: Yes (Other)
  Sender: FDA-CTU
  Company Number: None

PATIENT
  Age: 46 Year
  Sex: Female

DRUGS (1)
  1. HUMIRA [Suspect]
     Active Substance: ADALIMUMAB
     Indication: Rheumatoid nodule
     Dosage: FREQUENCY : EVERY OTHER WEEK;?

REACTIONS (6)
  - Constipation [None]
  - Pruritus [None]
  - Sleep disorder [None]
  - Ear infection [None]
  - Intentional dose omission [None]
  - Drug ineffective [None]
